FAERS Safety Report 4816235-X (Version None)
Quarter: 2005Q4

REPORT INFORMATION
  Report Type: 
  Country: None (occurrence: None)
  Receive Date: 20051026
  Receipt Date: 20051013
  Transmission Date: 20060501
  Serious: Yes (Hospitalization)
  Sender: FDA-Public Use
  Company Number: 218642

PATIENT
  Age: 66 Year
  Sex: Female

DRUGS (6)
  1. MABTHERA (RITUXIMAB) CONC FOR SOLUTION FOR INFUSION [Suspect]
     Indication: NON-HODGKIN'S LYMPHOMA
     Dosage: 680 MG, SINGLE, INTRAVENOUS
     Route: 042
     Dates: start: 20050520, end: 20050613
  2. MABTHERA (RITUXIMAB) CONC FOR SOLUTION FOR INFUSION [Suspect]
     Indication: NON-HODGKIN'S LYMPHOMA
     Dosage: 680 MG, SINGLE, INTRAVENOUS
     Route: 042
     Dates: start: 20050613, end: 20050613
  3. DOXORUBICIN HYDROCHLORIDE [Suspect]
     Indication: NON-HODGKIN'S LYMPHOMA
     Dosage: 86 MG, INTRAVENOUS
     Route: 042
     Dates: start: 20050520, end: 20050613
  4. CYCLOPHOSPHAMIDE [Suspect]
     Indication: NON-HODGKIN'S LYMPHOMA
     Dosage: 1290 MG, INTRAVENOUS
     Route: 042
     Dates: start: 20050520, end: 20050613
  5. VINCRISTINE [Concomitant]
  6. VINDESINE (VINDESINE) [Concomitant]

REACTIONS (5)
  - ASTHENIA [None]
  - ASTHMA [None]
  - COUGH [None]
  - TRACHEITIS [None]
  - URINARY INCONTINENCE [None]
